FAERS Safety Report 24701419 (Version 1)
Quarter: 2024Q4

REPORT INFORMATION
  Report Type: Spontaneous
  Country: US (occurrence: None)
  Receive Date: 20241205
  Receipt Date: 20241205
  Transmission Date: 20250115
  Serious: Yes (Disabling)
  Sender: Public
  Company Number: None

PATIENT
  Age: 52 Year
  Sex: Male

DRUGS (9)
  1. ELIQUIS [Suspect]
     Active Substance: APIXABAN
     Indication: Anticoagulant therapy
     Dosage: FREQUENCY : TWICE A DAY;?
     Route: 048
     Dates: start: 20220921, end: 20240721
  2. Empasliflozen [Concomitant]
  3. CHOLECALCIFEROL [Concomitant]
     Active Substance: CHOLECALCIFEROL
  4. METOPROLOL [Concomitant]
     Active Substance: METOPROLOL
  5. ISOSORBIDE DINITRATE [Concomitant]
     Active Substance: ISOSORBIDE DINITRATE
  6. ATORVASTATIN [Concomitant]
     Active Substance: ATORVASTATIN
  7. LEVOTHYROXINE [Concomitant]
     Active Substance: LEVOTHYROXINE
  8. LEVTIRACETAN [Concomitant]
  9. WARFARIN [Concomitant]
     Active Substance: WARFARIN

REACTIONS (3)
  - Cerebrovascular accident [None]
  - Hypoaesthesia [None]
  - Joint stiffness [None]

NARRATIVE: CASE EVENT DATE: 20220924
